FAERS Safety Report 9383937 (Version 1)
Quarter: 2013Q3

REPORT INFORMATION
  Report Type: Spontaneous
  Country: US (occurrence: US)
  Receive Date: 20130705
  Receipt Date: 20130705
  Transmission Date: 20140515
  Serious: Yes (Other)
  Sender: FDA-Public Use
  Company Number: US-AMGEN-USASP2013046231

PATIENT
  Age: 66 Year
  Sex: Female
  Weight: 131.52 kg

DRUGS (1)
  1. NPLATE [Suspect]
     Indication: IMMUNE THROMBOCYTOPENIC PURPURA
     Dosage: 1179 MUG, QWK
     Dates: start: 2012

REACTIONS (1)
  - Platelet count decreased [Unknown]
